FAERS Safety Report 7009080-0 (Version None)
Quarter: 2010Q3

REPORT INFORMATION
  Report Type: 
  Country: None (occurrence: None)
  Receive Date: 20100923
  Receipt Date: 20100819
  Transmission Date: 20110219
  Serious: No
  Sender: FDA-Public Use
  Company Number: US-BAYER-201020190BCC

PATIENT
  Age: 80 Year
  Sex: Female
  Weight: 77 kg

DRUGS (6)
  1. ALEVE (CAPLET) [Suspect]
     Indication: BACK PAIN
     Dosage: TOTAL DAILY DOSE: 440 MG  UNIT DOSE: 220 MG
     Route: 048
     Dates: start: 20100801
  2. NAMENDA [Concomitant]
     Route: 065
  3. NEXIUM [Concomitant]
     Route: 065
  4. SHOPRITE COMPLETE VITAMIN [Concomitant]
     Route: 065
  5. SHOPRITE CALCIUM 600 PLUS D [Concomitant]
  6. GLUCOSAMINE CHONDROITIN [Concomitant]
     Route: 065

REACTIONS (2)
  - ARTHRALGIA [None]
  - BACK PAIN [None]
